FAERS Safety Report 7395672 (Version 3)
Quarter: 2013Q1

REPORT INFORMATION
  Report Type: Spontaneous
  Country: US (occurrence: US)
  Receive Date: 20100115
  Receipt Date: 20130322
  Transmission Date: 20140127
  Serious: Yes (Death)
  Sender: FDA-Public Use
  Company Number: US-PFIZER INC-2010001566

PATIENT
  Age: 56 Year
  Sex: Female

DRUGS (4)
  1. METFORMIN HCL [Suspect]
     Dosage: UNK
     Route: 048
  2. AMLODIPINE\ATORVASTATIN [Suspect]
     Dosage: UNK
     Route: 048
  3. OLMESARTAN MEDOXOMIL [Suspect]
     Dosage: UNK
     Route: 048
  4. FLUOXETINE [Suspect]
     Dosage: UNK
     Route: 048

REACTIONS (1)
  - Completed suicide [Fatal]
